FAERS Safety Report 23885523 (Version 1)
Quarter: 2024Q2

REPORT INFORMATION
  Report Type: Spontaneous
  Country: PE (occurrence: PE)
  Receive Date: 20240522
  Receipt Date: 20240522
  Transmission Date: 20240716
  Serious: Yes (Other)
  Sender: FDA-Public Use
  Company Number: PE-SUN PHARMACEUTICAL INDUSTRIES LTD-2024R1-447027

PATIENT
  Age: 55 Year
  Sex: Male

DRUGS (4)
  1. CALCITRIOL [Suspect]
     Active Substance: CALCITRIOL
     Indication: Osteoporosis
     Dosage: UNK
     Route: 065
  2. TESTOSTERONE [Suspect]
     Active Substance: TESTOSTERONE
     Indication: Osteoporosis
     Dosage: UNK
     Route: 030
  3. ZOLEDRONIC ACID [Suspect]
     Active Substance: ZOLEDRONIC ACID
     Indication: Osteoporosis
     Dosage: UNK
     Route: 042
  4. CALCIUM CARBONATE [Suspect]
     Active Substance: CALCIUM CARBONATE
     Indication: Osteoporosis
     Dosage: UNK
     Route: 065

REACTIONS (1)
  - Disease recurrence [Unknown]
